FAERS Safety Report 22354686 (Version 1)
Quarter: 2023Q2

REPORT INFORMATION
  Report Type: Spontaneous
  Country: ES (occurrence: ES)
  Receive Date: 20230523
  Receipt Date: 20230523
  Transmission Date: 20230722
  Serious: Yes (Other)
  Sender: FDA-Public Use
  Company Number: ES-002147023-NVSC2023ES042122

PATIENT
  Age: 67 Year
  Sex: Female

DRUGS (3)
  1. BEOVU [Suspect]
     Active Substance: BROLUCIZUMAB-DBLL
     Indication: Macular degeneration
     Dosage: UNK (RIGHT EYE)
     Route: 065
     Dates: start: 20221004
  2. BEOVU [Suspect]
     Active Substance: BROLUCIZUMAB-DBLL
     Indication: Detachment of retinal pigment epithelium
     Dosage: UNK (RIGHT EYE)
     Route: 065
     Dates: start: 20221129
  3. BEOVU [Suspect]
     Active Substance: BROLUCIZUMAB-DBLL
     Dosage: DAILY DOSE (1) (RIGHT EYE)
     Route: 031
     Dates: start: 20230202, end: 20230202

REACTIONS (7)
  - Glaucoma [Unknown]
  - Uveitis [Not Recovered/Not Resolved]
  - Endophthalmitis [Unknown]
  - Blindness unilateral [Recovered/Resolved with Sequelae]
  - Retinal ischaemia [Unknown]
  - Retinal haemorrhage [Unknown]
  - Eye oedema [Unknown]

NARRATIVE: CASE EVENT DATE: 20230214
